FAERS Safety Report 9937339 (Version 1)
Quarter: 2014Q1

REPORT INFORMATION
  Report Type: Spontaneous
  Country: DE (occurrence: DE)
  Receive Date: 20140302
  Receipt Date: 20140302
  Transmission Date: 20141002
  Serious: Yes (Hospitalization)
  Sender: FDA-Public Use
  Company Number: DE-ROCHE-1357212

PATIENT
  Sex: Male

DRUGS (7)
  1. LUCENTIS [Suspect]
     Indication: AGE-RELATED MACULAR DEGENERATION
     Route: 050
     Dates: start: 20070208
  2. LUCENTIS [Suspect]
     Route: 050
     Dates: start: 20120511
  3. RAMIPRIL [Concomitant]
     Route: 065
     Dates: start: 2000
  4. CONCOR [Concomitant]
     Route: 065
     Dates: start: 2007
  5. SORTIS [Concomitant]
     Route: 065
     Dates: start: 2009
  6. DUTASTERIDE/TAMSULOSIN HYDROCHLORIDE [Concomitant]
     Route: 065
     Dates: start: 2011, end: 20120718
  7. ASS [Concomitant]
     Route: 065
     Dates: start: 2000, end: 20120818

REACTIONS (2)
  - Urinary tract infection [Recovering/Resolving]
  - Pyrexia [Recovering/Resolving]
